FAERS Safety Report 5441232-3 (Version None)
Quarter: 2007Q3

REPORT INFORMATION
  Report Type: 
  Country: None (occurrence: None)
  Receive Date: 20070901
  Receipt Date: 20070824
  Transmission Date: 20080115
  Serious: Yes (Hospitalization)
  Sender: FDA-Public Use
  Company Number: CA-SANOFI-SYNTHELABO-A01200709560

PATIENT
  Age: 54 Year
  Sex: Male

DRUGS (2)
  1. ATIVAN [Concomitant]
     Route: 048
  2. PLAQUENIL [Suspect]
     Indication: RHEUMATOID ARTHRITIS
     Route: 048
     Dates: start: 20040501, end: 20070812

REACTIONS (1)
  - THROMBOCYTOPENIC PURPURA [None]
